FAERS Safety Report 15204479 (Version 2)
Quarter: 2018Q3

REPORT INFORMATION
  Report Type: Other
  Country: DK (occurrence: DK)
  Receive Date: 20180726
  Receipt Date: 20180906
  Transmission Date: 20181010
  Serious: Yes (Hospitalization)
  Sender: FDA-Public Use
  Company Number: DK-RARE DISEASE THERAPEUTICS, INC.-2052785

PATIENT
  Age: 32 Year
  Sex: Female
  Weight: 52 kg

DRUGS (12)
  1. OCTREOTIDE. [Suspect]
     Active Substance: OCTREOTIDE
     Route: 065
  2. INFLIXMAB [Suspect]
     Active Substance: INFLIXIMAB
     Route: 065
  3. LAMOTRIGINE. [Concomitant]
     Active Substance: LAMOTRIGINE
     Route: 065
  4. LOPERAMIDE [Concomitant]
     Active Substance: LOPERAMIDE
     Route: 065
  5. NATALIZUMAB [Suspect]
     Active Substance: NATALIZUMAB
     Route: 065
  6. ADALIMUMAB [Suspect]
     Active Substance: ADALIMUMAB
     Route: 065
  7. SPIRONOLACTONE. [Suspect]
     Active Substance: SPIRONOLACTONE
     Route: 065
  8. LIRAGLUTIDE [Suspect]
     Active Substance: LIRAGLUTIDE
     Route: 065
  9. PURIXAN [Suspect]
     Active Substance: MERCAPTOPURINE
     Indication: CROHN^S DISEASE
  10. COLESEVELAM [Concomitant]
     Active Substance: COLESEVELAM
     Route: 065
  11. VEDOLIZUMAB [Suspect]
     Active Substance: VEDOLIZUMAB
     Route: 065
  12. LEVETIRACETAM. [Concomitant]
     Active Substance: LEVETIRACETAM
     Route: 065

REACTIONS (7)
  - Functional gastrointestinal disorder [Recovering/Resolving]
  - Abdominal pain [Unknown]
  - Drug ineffective [Unknown]
  - Product use in unapproved indication [Unknown]
  - Clostridium difficile colitis [Unknown]
  - Bile acid malabsorption [Recovering/Resolving]
  - Off label use [None]
